FAERS Safety Report 13140046 (Version 1)
Quarter: 2017Q1

REPORT INFORMATION
  Report Type: Spontaneous
  Country: US (occurrence: US)
  Receive Date: 20170123
  Receipt Date: 20170123
  Transmission Date: 20170428
  Serious: Yes (Hospitalization)
  Sender: FDA-Public Use
  Company Number: US-ASTRAZENECA-2017SE04642

PATIENT
  Sex: Male

DRUGS (1)
  1. LYNPARZA [Suspect]
     Active Substance: OLAPARIB
     Indication: NEOPLASM MALIGNANT
     Route: 048

REACTIONS (4)
  - Product use issue [Unknown]
  - Influenza [Not Recovered/Not Resolved]
  - Dyspnoea [Unknown]
  - Off label use [Unknown]
